FAERS Safety Report 9071798 (Version 1)
Quarter: 2013Q1

REPORT INFORMATION
  Report Type: Report from Study
  Country: US (occurrence: US)
  Receive Date: 20130129
  Receipt Date: 20130129
  Transmission Date: 20140127
  Serious: No
  Sender: FDA-Public Use
  Company Number: US-ABBOTT-12P-163-0924382-00

PATIENT
  Age: 37 Year
  Sex: Female

DRUGS (9)
  1. HUMIRA 40 MG/0.8 ML PEN [Suspect]
     Indication: RHEUMATOID ARTHRITIS
     Dates: start: 20120404
  2. HUMIRA 40 MG/0.8 ML PEN [Suspect]
     Indication: FIBROMYALGIA
  3. HUMIRA 40 MG/0.8 ML PEN [Suspect]
     Indication: SJOGREN^S SYNDROME
  4. CELEBREX [Concomitant]
     Indication: RHEUMATOID ARTHRITIS
  5. VICODIN [Concomitant]
     Indication: RHEUMATOID ARTHRITIS
     Dosage: 500MG UP TO 3 TABS DAILY, AS REQUIRED
  6. PRILOSEC [Concomitant]
     Indication: DYSPEPSIA
     Dosage: 20 MG DAILY
  7. RESTASIS [Concomitant]
     Indication: DRY EYE
     Dosage: 1 DROP PER EYE TWICE DAILY
     Route: 047
  8. XANAX ER [Concomitant]
     Indication: ANXIETY
     Dosage: 1MG DAILY
  9. XANAX ER [Concomitant]
     Indication: FIBROMYALGIA

REACTIONS (3)
  - Nausea [Not Recovered/Not Resolved]
  - Injection site bruising [Recovering/Resolving]
  - Fatigue [Not Recovered/Not Resolved]
